FAERS Safety Report 7471324-9 (Version None)
Quarter: 2011Q2

REPORT INFORMATION
  Report Type: 
  Country: None (occurrence: None)
  Receive Date: 20110510
  Receipt Date: 20110505
  Transmission Date: 20111010
  Serious: Yes (Death, Hospitalization, Other)
  Sender: FDA-Public Use
  Company Number: US-AMGEN INC.-KDL443778

PATIENT
  Age: 40 Year
  Sex: Female

DRUGS (3)
  1. NPLATE [Suspect]
     Dosage: UNK
     Route: 058
     Dates: start: 20081020, end: 20101212
  2. NPLATE [Suspect]
     Indication: IDIOPATHIC THROMBOCYTOPENIC PURPURA
     Dosage: UNK UNK, UNK
     Dates: start: 20020401
  3. NPLATE [Suspect]
     Dates: start: 20090504

REACTIONS (7)
  - DEATH [None]
  - HEADACHE [None]
  - BENIGN INTRACRANIAL HYPERTENSION [None]
  - PULMONARY EMBOLISM [None]
  - PAPILLOEDEMA [None]
  - HEPATIC STEATOSIS [None]
  - DEEP VEIN THROMBOSIS [None]
